FAERS Safety Report 9088306 (Version 1)
Quarter: 2013Q1

REPORT INFORMATION
  Report Type: Spontaneous
  Country: GB (occurrence: GB)
  Receive Date: 20130201
  Receipt Date: 20130201
  Transmission Date: 20140127
  Serious: Yes (Life-Threatening, Hospitalization, Other)
  Sender: FDA-Public Use
  Company Number: GB-B.I. PHARMACEUTICALS,INC./RIDGEFIELD-2013-BI-01711GD

PATIENT
  Age: 75 Year
  Sex: Female

DRUGS (5)
  1. DABIGATRAN ETEXILATE [Suspect]
     Indication: PROPHYLAXIS
     Dosage: 150 MG
  2. DABIGATRAN ETEXILATE [Suspect]
     Indication: HIP ARTHROPLASTY
  3. ALTEPLASE [Suspect]
     Indication: PULMONARY EMBOLISM
     Dosage: 100 MG
  4. HEPARIN [Suspect]
     Indication: ANTICOAGULANT THERAPY
  5. INHALERS [Concomitant]
     Indication: OBLITERATIVE BRONCHIOLITIS
     Route: 055

REACTIONS (11)
  - Adrenocortical insufficiency acute [Unknown]
  - Adrenal haemorrhage [Recovered/Resolved]
  - Bundle branch block right [Unknown]
  - Respiratory failure [Unknown]
  - Sepsis [Unknown]
  - Renal failure acute [Unknown]
  - Pneumonia [Unknown]
  - Lung consolidation [Unknown]
  - Cardiac arrest [Recovered/Resolved]
  - Pulmonary embolism [Unknown]
  - Hypotension [Unknown]
